FAERS Safety Report 8624613-6 (Version None)
Quarter: 2012Q3

REPORT INFORMATION
  Report Type: 
  Country: None (occurrence: None)
  Receive Date: 20120827
  Receipt Date: 20120822
  Transmission Date: 20120928
  Serious: Yes (Other)
  Sender: FDA-Public Use
  Company Number: US-PFIZER INC-2012206438

PATIENT
  Age: 85 Year
  Sex: Male
  Weight: 73.469 kg

DRUGS (4)
  1. WARFARIN [Concomitant]
     Dosage: UNK
  2. DIGOXIN [Concomitant]
     Dosage: UNK
  3. LYRICA [Suspect]
     Indication: NEUROPATHY PERIPHERAL
     Dosage: 75 MG, 2X/DAY
     Dates: start: 20120201
  4. NYSTATIN [Concomitant]
     Dosage: UNK

REACTIONS (4)
  - MYALGIA [None]
  - JOINT SWELLING [None]
  - BLOOD PRESSURE FLUCTUATION [None]
  - GAIT DISTURBANCE [None]
